FAERS Safety Report 22181440 (Version 3)
Quarter: 2023Q2

REPORT INFORMATION
  Report Type: Spontaneous
  Country: SE (occurrence: SE)
  Receive Date: 20230406
  Receipt Date: 20230418
  Transmission Date: 20230721
  Serious: No
  Sender: FDA-Public Use
  Company Number: SE-BoehringerIngelheim-2023-BI-230019

PATIENT
  Age: 8 Decade
  Sex: Male

DRUGS (1)
  1. JARDIANCE [Suspect]
     Active Substance: EMPAGLIFLOZIN
     Indication: Product used for unknown indication
     Dates: start: 202301

REACTIONS (2)
  - Limb injury [Unknown]
  - Impaired healing [Unknown]
